FAERS Safety Report 4309458-X (Version None)
Quarter: 2004Q1

REPORT INFORMATION
  Report Type: 
  Country: None (occurrence: None)
  Receive Date: 20040301
  Receipt Date: 20040220
  Transmission Date: 20041129
  Serious: Yes (Death)
  Sender: FDA-Public Use
  Company Number: 2004008271

PATIENT
  Age: 42 Year
  Sex: Male

DRUGS (4)
  1. BEGALIN-P (AMPICILLIN, SULBACTAM) [Suspect]
     Indication: ILL-DEFINED DISORDER
     Dosage: 1.5 MG TID, INTRAVENOUS
     Route: 042
     Dates: start: 20040206, end: 20040206
  2. ACETAMINOPHEN [Concomitant]
  3. PROPOXYPHENE HCL [Concomitant]
  4. ACETYLSALICYLIC ACID SRT [Concomitant]

REACTIONS (6)
  - ANAPHYLACTIC REACTION [None]
  - HYPOTENSION [None]
  - INFUSION RELATED REACTION [None]
  - THROAT IRRITATION [None]
  - VENTRICULAR FIBRILLATION [None]
  - VOMITING [None]
